FAERS Safety Report 8806602 (Version 4)
Quarter: 2014Q2

REPORT INFORMATION
  Report Type: Spontaneous
  Country: US (occurrence: US)
  Receive Date: 20120925
  Receipt Date: 20140520
  Transmission Date: 20141212
  Serious: Yes (Hospitalization, Other)
  Sender: FDA-Public Use
  Company Number: US-009507513-1209USA009486

PATIENT
  Sex: 0
  Weight: 51.8 kg

DRUGS (15)
  1. FOSAMAX [Suspect]
     Indication: OSTEOPOROSIS
     Dosage: 10 MG, UNK
     Route: 048
     Dates: start: 199510, end: 200201
  2. FOSAMAX [Suspect]
     Dosage: 70 MG, QW
     Route: 048
     Dates: start: 200201
  3. ALENDRONATE SODIUM [Suspect]
     Dosage: 70 MG, UNK
  4. CALCIUM (UNSPECIFIED) [Concomitant]
     Dosage: 600 MG, UNK
     Dates: start: 1990
  5. CHOLECALCIFEROL [Concomitant]
     Dosage: 1000 IU, UNK
     Dates: start: 1990
  6. CORTICOSTEROIDS (UNSPECIFIED) [Concomitant]
     Dosage: UNK
     Dates: start: 1990, end: 2013
  7. NEXIUM [Concomitant]
     Dosage: UNK
     Dates: start: 1995
  8. ACTONEL [Concomitant]
     Indication: OSTEOPOROSIS
     Dosage: UNK, QW
  9. CALCITROL [Concomitant]
     Indication: OSTEOPOROSIS
  10. FENTANYL [Concomitant]
     Indication: MUSCULOSKELETAL DISCOMFORT
  11. FENTANYL [Concomitant]
     Indication: MUSCULOSKELETAL DISCOMFORT
  12. OXYCONTIN [Concomitant]
     Indication: MUSCULOSKELETAL DISCOMFORT
  13. OXYCONTIN [Concomitant]
     Indication: MUSCULOSKELETAL DISCOMFORT
  14. PERCOCET [Concomitant]
     Indication: MUSCULOSKELETAL DISCOMFORT
  15. PERCOCET [Concomitant]
     Indication: MUSCULOSKELETAL DISCOMFORT

REACTIONS (88)
  - Femur fracture [Unknown]
  - Intramedullary rod insertion [Unknown]
  - Hip fracture [Unknown]
  - Intramedullary rod insertion [Unknown]
  - Systemic lupus erythematosus [Unknown]
  - Oesophageal adenocarcinoma [Unknown]
  - Haemothorax [Unknown]
  - Clavicle fracture [Unknown]
  - Oesophageal operation [Unknown]
  - Myocardial infarction [Unknown]
  - Neurogenic bladder [Unknown]
  - Pleural effusion [Unknown]
  - Respiratory failure [Recovered/Resolved]
  - Septic shock [Recovered/Resolved]
  - Cardiogenic shock [Recovered/Resolved]
  - Lung neoplasm malignant [Unknown]
  - Cardiomyopathy [Unknown]
  - Acute myocardial infarction [Unknown]
  - Transaminases increased [Unknown]
  - Pericardial effusion [Unknown]
  - Suicidal ideation [Unknown]
  - Mental status changes [Recovering/Resolving]
  - Surgery [Unknown]
  - Bursitis [Unknown]
  - Lumbar vertebral fracture [Unknown]
  - Coronary arterial stent insertion [Unknown]
  - Haemorrhagic anaemia [Unknown]
  - Spinal compression fracture [Unknown]
  - Troponin increased [Unknown]
  - Hypercholesterolaemia [Unknown]
  - Granuloma [Unknown]
  - Barrett^s oesophagus [Unknown]
  - Calcium deficiency [Unknown]
  - Hypertension [Unknown]
  - Stress fracture [Unknown]
  - Pulmonary hypertension [Unknown]
  - Compression fracture [Unknown]
  - Skin discolouration [Unknown]
  - Sinusitis [Unknown]
  - Mitral valve incompetence [Unknown]
  - Spinal column stenosis [Unknown]
  - Cervical radiculopathy [Unknown]
  - Lumbar radiculopathy [Unknown]
  - Facet joint syndrome [Unknown]
  - Infection [Not Recovered/Not Resolved]
  - Interstitial lung disease [Unknown]
  - Migraine [Unknown]
  - Escherichia infection [Unknown]
  - Blood sodium decreased [Unknown]
  - Blood urine present [Unknown]
  - Platelet count increased [Unknown]
  - Haematocrit decreased [Unknown]
  - Haemoglobin decreased [Unknown]
  - Arteriosclerosis [Unknown]
  - Depression [Not Recovered/Not Resolved]
  - Bipolar disorder [Unknown]
  - Fibromyalgia [Unknown]
  - Chronic obstructive pulmonary disease [Not Recovered/Not Resolved]
  - Fall [Unknown]
  - Fall [Unknown]
  - Bandaemia [Unknown]
  - White blood cell count increased [Unknown]
  - Fall [Unknown]
  - Biliary dilatation [Unknown]
  - Atrial fibrillation [Unknown]
  - Sciatica [Unknown]
  - Spinal osteoarthritis [Unknown]
  - Normochromic normocytic anaemia [Unknown]
  - Hiatus hernia [Unknown]
  - Post-traumatic stress disorder [Unknown]
  - Intervertebral disc protrusion [Unknown]
  - Spinal osteoarthritis [Unknown]
  - Pain [Not Recovered/Not Resolved]
  - White blood cell count increased [Unknown]
  - Radiotherapy to lung [Unknown]
  - Presyncope [Unknown]
  - Subclavian artery stenosis [Unknown]
  - Glaucoma [Unknown]
  - Peripheral arterial occlusive disease [Unknown]
  - Anaemia [Not Recovered/Not Resolved]
  - Anxiety [Unknown]
  - Sleep apnoea syndrome [Unknown]
  - Arthralgia [Not Recovered/Not Resolved]
  - Dyspepsia [Unknown]
  - Gastritis [Unknown]
  - Nausea [Unknown]
  - Drug ineffective [Unknown]
  - Headache [Unknown]
